FAERS Safety Report 8161599-5 (Version None)
Quarter: 2012Q1

REPORT INFORMATION
  Report Type: 
  Country: None (occurrence: None)
  Receive Date: 20120224
  Receipt Date: 20120215
  Transmission Date: 20120608
  Serious: Yes (Hospitalization, Other)
  Sender: FDA-Public Use
  Company Number: US-BAYER-2011-099571

PATIENT
  Age: 17 Year
  Sex: Female
  Weight: 58.957 kg

DRUGS (10)
  1. EXCEDRIN [CAFFEINE,PARACETAMOL] [Concomitant]
     Indication: MIGRAINE
     Dosage: UNK
     Dates: start: 20070101, end: 20110101
  2. XOPENEX [Concomitant]
     Dosage: UNK
     Dates: start: 20090101
  3. FAMOTIDINE [Concomitant]
  4. DICYCLOMINE [Concomitant]
  5. YAZ [Suspect]
     Dosage: UNK
     Dates: start: 20071001, end: 20091001
  6. ACETAMINOPHEN [Concomitant]
     Indication: MIGRAINE
     Dosage: UNK
     Dates: start: 20070101, end: 20110101
  7. AMITRIPTYLINE HCL [Concomitant]
  8. SUCRALFATE [Concomitant]
  9. HYDROCODONE BITARTRATE [Concomitant]
  10. JUNEL FE 1.5/30 [Concomitant]
     Dosage: UNK
     Dates: start: 20090926

REACTIONS (3)
  - GALLBLADDER NON-FUNCTIONING [None]
  - PAIN [None]
  - CHOLECYSTITIS CHRONIC [None]
